FAERS Safety Report 9166233 (Version 1)
Quarter: 2013Q1

REPORT INFORMATION
  Report Type: Spontaneous
  Country: DO (occurrence: DO)
  Receive Date: 20130315
  Receipt Date: 20130315
  Transmission Date: 20140127
  Serious: Yes (Other)
  Sender: FDA-Public Use
  Company Number: DO-PFIZER INC-2013086274

PATIENT
  Age: 64 Year
  Sex: Male

DRUGS (6)
  1. PANTOPRAZOLE [Suspect]
     Indication: DYSPEPSIA
     Dosage: 40 MG, 1X/DAY
     Route: 048
  2. PLAVIX [Concomitant]
     Dosage: UNK
     Dates: start: 2006
  3. CANDESARTAN CILEXETIL/HYDROCHLOROTHIAZIDE [Concomitant]
     Dosage: 32/12.5 MG, UNK
     Dates: start: 2006
  4. TENORMIN [Concomitant]
     Dosage: UNK
     Dates: start: 2006
  5. CRESTOR [Concomitant]
     Dosage: UNK
     Dates: start: 2006
  6. OMEGA 3 [Concomitant]
     Dosage: UNK
     Dates: start: 2006

REACTIONS (3)
  - Petechiae [Recovered/Resolved]
  - Back pain [Recovered/Resolved]
  - Pruritus [Recovered/Resolved]
